FAERS Safety Report 15799712 (Version 1)
Quarter: 2019Q1

REPORT INFORMATION
  Report Type: Spontaneous
  Country: ES (occurrence: ES)
  Receive Date: 20190108
  Receipt Date: 20190108
  Transmission Date: 20190417
  Serious: Yes (Life-Threatening, Hospitalization)
  Sender: FDA-Public Use
  Company Number: ES-MYLANLABS-2019M1000605

PATIENT
  Age: 63 Year
  Sex: Female

DRUGS (3)
  1. BUPIVACAINE. [Suspect]
     Active Substance: BUPIVACAINE
     Dosage: 0.75% BUPIVACAINE 22 ML WAS PREPARED TO RECHARGE THE RESERVOIR OF THE INTRATHECAL PUMP, HOWEVER, ...
     Route: 037
  2. MORPHINE [Concomitant]
     Active Substance: MORPHINE
     Indication: POST LAMINECTOMY SYNDROME
     Dosage: THROUGH PROMETRA II PROGRAMMABLE INTRATHECAL INFUSION PUMP
     Route: 037
  3. BUPIVACAINE. [Suspect]
     Active Substance: BUPIVACAINE
     Indication: POST LAMINECTOMY SYNDROME
     Dosage: CONTINUOUS FLOW BUPIVACAINE THROUGH PROMETRA II PROGRAMMABLE INTRATHECAL INFUSION PUMP.
     Route: 037

REACTIONS (9)
  - Respiratory arrest [Recovered/Resolved]
  - Product administration error [Recovered/Resolved]
  - Spinal anaesthesia [Recovered/Resolved]
  - Accidental overdose [Recovered/Resolved]
  - Wrong technique in product usage process [Recovered/Resolved]
  - Drug monitoring procedure incorrectly performed [Recovered/Resolved]
  - Respiratory distress [Recovered/Resolved]
  - Asthenia [Recovered/Resolved]
  - Wrong device used [Recovered/Resolved]
